FAERS Safety Report 5979656-8 (Version None)
Quarter: 2008Q4

REPORT INFORMATION
  Report Type: 
  Country: None (occurrence: None)
  Receive Date: 20081204
  Receipt Date: 20081124
  Transmission Date: 20090506
  Serious: Yes (Other)
  Sender: FDA-Public Use
  Company Number: US-JNJCH-2008055578

PATIENT
  Age: 67 Year
  Sex: Female
  Weight: 51.7 kg

DRUGS (1)
  1. LISTERINE WHITENING PRE-BRUSH RINSE [Suspect]
     Indication: DENTAL CARE
     Dosage: TEXT:ONE MOUTHFUL DAILY
     Route: 048
     Dates: start: 20071123, end: 20081113

REACTIONS (2)
  - CAUSTIC INJURY [None]
  - SKIN EXFOLIATION [None]
